FAERS Safety Report 4351152-3 (Version None)
Quarter: 2004Q2

REPORT INFORMATION
  Report Type: 
  Country: None (occurrence: None)
  Receive Date: 20040428
  Receipt Date: 20031031
  Transmission Date: 20050107
  Serious: Yes (Other)
  Sender: FDA-Public Use
  Company Number: NSADSS2002040634

PATIENT
  Sex: Male

DRUGS (1)
  1. ULTRAM [Suspect]
     Indication: PAIN
     Dosage: 2 TABLETS ONLY
     Dates: start: 20020321, end: 20020322

REACTIONS (3)
  - CONVULSION [None]
  - INJURY [None]
  - PAIN [None]
